FAERS Safety Report 4544089-8 (Version None)
Quarter: 2005Q1

REPORT INFORMATION
  Report Type: 
  Country: None (occurrence: None)
  Receive Date: 20050103
  Receipt Date: 20031104
  Transmission Date: 20050727
  Serious: Yes (Hospitalization)
  Sender: FDA-Public Use
  Company Number: PHFR2003GB03546

PATIENT
  Age: 28 Year
  Sex: Male

DRUGS (8)
  1. CLOZARIL [Suspect]
     Indication: SCHIZOPHRENIA
     Dosage: SEE IMAGE, ORAL
     Route: 048
     Dates: start: 20020219
  2. LORAZEPAM (NGX) (LORAZEPAM) [Suspect]
     Dosage: SEE IMAGE
  3. CARDURA [Concomitant]
  4. COVERSYL (PERINDOPRIL) [Concomitant]
  5. ADALAT [Concomitant]
  6. LITHIUM (LITHIUM) [Concomitant]
  7. LITHIUM CARBONATE [Concomitant]
  8. PROPRANOLOL [Concomitant]

REACTIONS (3)
  - DRUG ABUSER [None]
  - DRUG WITHDRAWAL SYNDROME [None]
  - EPILEPSY [None]
